FAERS Safety Report 20032182 (Version 2)
Quarter: 2022Q1

REPORT INFORMATION
  Report Type: Spontaneous
  Country: None (occurrence: US)
  Receive Date: 20211103
  Receipt Date: 20211130
  Transmission Date: 20220424
  Serious: No
  Sender: FDA-Public Use
  Company Number: US-B.Braun Medical Inc.-2120895

PATIENT
  Age: 61 Year
  Sex: Male
  Weight: 90 kg

DRUGS (1)
  1. BUPIVACAINE HYDROCHLORIDE WITH DEXTROSE [Suspect]
     Active Substance: BUPIVACAINE HYDROCHLORIDE
     Indication: Spinal anaesthesia

REACTIONS (1)
  - Anaesthetic complication [None]
